FAERS Safety Report 7689310-2 (Version None)
Quarter: 2011Q3

REPORT INFORMATION
  Report Type: 
  Country: None (occurrence: None)
  Receive Date: 20110817
  Receipt Date: 20110810
  Transmission Date: 20111222
  Serious: Yes (Other)
  Sender: FDA-Public Use
  Company Number: US-BAYER-201041639NA

PATIENT
  Age: 43 Year
  Sex: Female

DRUGS (3)
  1. YAZ [Suspect]
     Indication: PRODUCT USED FOR UNKNOWN INDICATION
     Route: 048
     Dates: start: 20080401, end: 20081101
  2. TRAZODONE HCL [Concomitant]
     Dosage: 10 MG, QD
  3. TAPAZOLE [Concomitant]

REACTIONS (3)
  - DEEP VEIN THROMBOSIS [None]
  - CARDIAC DISORDER [None]
  - PULMONARY EMBOLISM [None]
